FAERS Safety Report 8017176-X (Version None)
Quarter: 2012Q1

REPORT INFORMATION
  Report Type: 
  Country: None (occurrence: None)
  Receive Date: 20120102
  Receipt Date: 20111228
  Transmission Date: 20120608
  Serious: Yes (Hospitalization)
  Sender: FDA-Public Use
  Company Number: US-ROCHE-1025972

PATIENT
  Sex: Male
  Weight: 113.6 kg

DRUGS (16)
  1. AVASTIN [Suspect]
     Indication: HEPATIC NEOPLASM MALIGNANT
     Route: 042
     Dates: start: 20111206
  2. FERROUS SULFATE TAB [Concomitant]
  3. DIGOXIN [Concomitant]
  4. TARCEVA [Suspect]
     Indication: HEPATIC NEOPLASM MALIGNANT
     Route: 048
     Dates: start: 20111206, end: 20111213
  5. CARDURA [Concomitant]
  6. POTASSIUM CHLORIDE [Concomitant]
  7. CIPROFLOXACIN [Concomitant]
  8. DILTIAZEM HCL [Concomitant]
  9. HYDROCHLOROTHIAZIDE [Concomitant]
  10. ATARAX [Concomitant]
  11. METFORMIN HCL [Concomitant]
  12. ZOCOR [Concomitant]
  13. TESSALON [Concomitant]
  14. COREG [Concomitant]
  15. OXYCODONE HCL [Concomitant]
  16. LORATADINE [Concomitant]

REACTIONS (1)
  - HEART RATE INCREASED [None]
